FAERS Safety Report 8548914-5 (Version None)
Quarter: 2012Q3

REPORT INFORMATION
  Report Type: 
  Country: None (occurrence: None)
  Receive Date: 20120730
  Receipt Date: 20120726
  Transmission Date: 20120928
  Serious: Yes (Other)
  Sender: FDA-Public Use
  Company Number: PHHY2012BR056067

PATIENT
  Sex: Female
  Weight: 60 kg

DRUGS (2)
  1. CATAFLAM [Suspect]
     Indication: PHARYNGEAL INFLAMMATION
     Dosage: 1 DF, ONCE/SINGLE
     Route: 048
     Dates: start: 20080101, end: 20080101
  2. CYPROTERONE ACETATE/ETHINYLESTRADIOL [Concomitant]
     Indication: CONTRACEPTION
     Dates: start: 20120301

REACTIONS (3)
  - HEADACHE [None]
  - HYPERSENSITIVITY [None]
  - EYE SWELLING [None]
